FAERS Safety Report 7444379-5 (Version None)
Quarter: 2011Q2

REPORT INFORMATION
  Report Type: 
  Country: None (occurrence: None)
  Receive Date: 20110419
  Receipt Date: 20110405
  Transmission Date: 20111010
  Serious: Yes (Other)
  Sender: FDA-Public Use
  Company Number: 030746

PATIENT
  Sex: Female

DRUGS (3)
  1. FOLIC ACID [Concomitant]
  2. KEPPRA [Suspect]
     Indication: EPILEPSY
     Dosage: (2000 MG BID, 200MG IN THE AM AND 2000MG IN THE PM; 1ST TRIMESTER)
  3. PRENATAL VITAMINS /01549301/ [Concomitant]

REACTIONS (2)
  - STILLBIRTH [None]
  - DRUG EXPOSURE DURING PREGNANCY [None]
